FAERS Safety Report 23381694 (Version 2)
Quarter: 2024Q1

REPORT INFORMATION
  Report Type: Spontaneous
  Country: RO (occurrence: RO)
  Receive Date: 20240109
  Receipt Date: 20240124
  Transmission Date: 20240410
  Serious: Yes (Hospitalization, Other)
  Sender: FDA-Public Use
  Company Number: RO-drreddys-LIT/ROM/23/0178458

PATIENT
  Age: 73 Year
  Sex: Male

DRUGS (7)
  1. AZACITIDINE [Suspect]
     Active Substance: AZACITIDINE
     Indication: Acute myeloid leukaemia
     Dosage: UNK, CYCLICAL (SECOND ROUND )
     Route: 058
  2. AZACITIDINE [Suspect]
     Active Substance: AZACITIDINE
     Indication: Myelodysplastic syndrome
     Dosage: UNK, CYCLICAL
     Route: 058
     Dates: start: 2023
  3. VENETOCLAX [Suspect]
     Active Substance: VENETOCLAX
     Indication: Acute myeloid leukaemia
     Dosage: UNK
     Route: 058
     Dates: start: 2023
  4. VENETOCLAX [Suspect]
     Active Substance: VENETOCLAX
     Indication: Myelodysplastic syndrome
  5. LINEZOLID [Concomitant]
     Active Substance: LINEZOLID
     Indication: Subcutaneous abscess
     Dosage: UNK
     Route: 065
  6. COLISTIN [Concomitant]
     Active Substance: COLISTIN
     Indication: Subcutaneous abscess
     Dosage: UNK
     Route: 065
  7. MEROPENEM [Concomitant]
     Active Substance: MEROPENEM
     Indication: Subcutaneous abscess
     Dosage: UNK
     Route: 065

REACTIONS (11)
  - Acute febrile neutrophilic dermatosis [Recovering/Resolving]
  - Pyrexia [Recovering/Resolving]
  - Pyoderma gangrenosum [Recovering/Resolving]
  - Leukopenia [Recovering/Resolving]
  - Skin mass [Recovering/Resolving]
  - Injection site plaque [Recovering/Resolving]
  - Subcutaneous abscess [Recovering/Resolving]
  - Pain [Recovering/Resolving]
  - Anaemia [Recovering/Resolving]
  - Inflammation [Recovering/Resolving]
  - Skin plaque [Recovering/Resolving]

NARRATIVE: CASE EVENT DATE: 20230101
